FAERS Safety Report 9520392 (Version 1)
Quarter: 2013Q3

REPORT INFORMATION
  Report Type: Spontaneous
  Country: EE (occurrence: EE)
  Receive Date: 20130912
  Receipt Date: 20130912
  Transmission Date: 20140515
  Serious: Yes (Death)
  Sender: FDA-Public Use
  Company Number: EE-B.I. PHARMACEUTICALS,INC./RIDGEFIELD-2013-BI-28362EA

PATIENT
  Age: 59 Year
  Sex: Male

DRUGS (2)
  1. TWYNSTA [Suspect]
     Indication: HYPERTENSION
     Dosage: 80/10 MG
     Route: 048
     Dates: start: 20130730, end: 20130807
  2. BETALOCZOC [Concomitant]
     Indication: HYPERTENSION
     Dosage: 50 MG
     Route: 048
     Dates: start: 2008, end: 20130807

REACTIONS (1)
  - Acute myocardial infarction [Fatal]
